FAERS Safety Report 21901979 (Version 2)
Quarter: 2023Q1

REPORT INFORMATION
  Report Type: Spontaneous
  Country: SE (occurrence: None)
  Receive Date: 20230124
  Receipt Date: 20230131
  Transmission Date: 20230417
  Serious: Yes (Other)
  Sender: FDA-Public Use
  Company Number: SE-ROCHE-3266026

PATIENT
  Sex: Male
  Weight: 130 kg

DRUGS (1)
  1. HEMLIBRA [Suspect]
     Active Substance: EMICIZUMAB-KXWH
     Indication: Factor VIII deficiency
     Dosage: PHYSICIAN INCREASED THE DOSE BY 20%.
     Route: 065

REACTIONS (2)
  - Contusion [Unknown]
  - Sepsis [Unknown]
